FAERS Safety Report 5141561-7 (Version None)
Quarter: 2006Q4

REPORT INFORMATION
  Report Type: 
  Country: None (occurrence: None)
  Receive Date: 20061030
  Receipt Date: 20061030
  Transmission Date: 20070319
  Serious: Yes (Other)
  Sender: FDA-Public Use
  Company Number: None

PATIENT
  Sex: Female
  Weight: 79.3795 kg

DRUGS (4)
  1. TOPROL-XL [Suspect]
     Indication: BLOOD PRESSURE
     Dosage: 50 MG DAILY
     Dates: start: 20060501
  2. TOPROL-XL [Suspect]
     Indication: EXTRASYSTOLES
     Dosage: 50 MG DAILY
     Dates: start: 20060501
  3. TOPROL-XL [Suspect]
     Indication: BLOOD PRESSURE
     Dosage: 50 MG DAILY
     Dates: start: 20060801
  4. TOPROL-XL [Suspect]
     Indication: EXTRASYSTOLES
     Dosage: 50 MG DAILY
     Dates: start: 20060801

REACTIONS (3)
  - BLOOD PRESSURE INCREASED [None]
  - DRUG INEFFECTIVE [None]
  - PHARMACEUTICAL PRODUCT COMPLAINT [None]
